FAERS Safety Report 13631955 (Version 1)
Quarter: 2017Q2

REPORT INFORMATION
  Report Type: Spontaneous
  Country: US (occurrence: US)
  Receive Date: 20170531
  Receipt Date: 20170531
  Transmission Date: 20170830
  Serious: No
  Sender: FDA-Public Use
  Company Number: US-ASTELLAS-1428846

PATIENT
  Sex: Female

DRUGS (9)
  1. TARCEVA [Suspect]
     Active Substance: ERLOTINIB HYDROCHLORIDE
     Indication: LUNG NEOPLASM MALIGNANT
     Route: 048
     Dates: start: 20120502
  2. FOLIC ACID. [Concomitant]
     Active Substance: FOLIC ACID
  3. NEXIUM [Concomitant]
     Active Substance: ESOMEPRAZOLE MAGNESIUM
  4. VITAMIN B12 [Concomitant]
     Active Substance: CYANOCOBALAMIN
  5. ASPIRIN. [Concomitant]
     Active Substance: ASPIRIN
  6. BENICAR [Concomitant]
     Active Substance: OLMESARTAN MEDOXOMIL
  7. TOPROL XL [Concomitant]
     Active Substance: METOPROLOL SUCCINATE
  8. METFORMIN [Concomitant]
     Active Substance: METFORMIN HYDROCHLORIDE
  9. ADVIL COLD AND SINUS [Concomitant]
     Active Substance: IBUPROFEN\PSEUDOEPHEDRINE HYDROCHLORIDE

REACTIONS (5)
  - Diarrhoea [Unknown]
  - Flatulence [Unknown]
  - Hypersensitivity [Unknown]
  - Nausea [Unknown]
  - Constipation [Unknown]
